FAERS Safety Report 5657173-2 (Version None)
Quarter: 2008Q1

REPORT INFORMATION
  Report Type: 
  Country: None (occurrence: None)
  Receive Date: 20080310
  Receipt Date: 20080305
  Transmission Date: 20080703
  Serious: Yes (Hospitalization)
  Sender: FDA-Public Use
  Company Number: JP-WYE-H02801308

PATIENT
  Sex: Male

DRUGS (14)
  1. HYPEN [Suspect]
     Indication: SPINAL OSTEOARTHRITIS
     Route: 048
     Dates: start: 20070820
  2. FUROSEMIDE [Concomitant]
     Indication: CARDIAC FAILURE
     Dosage: UNSPECIFIED
     Route: 048
     Dates: start: 20041011
  3. VALSARTAN [Concomitant]
     Indication: HYPERTENSION
     Dosage: UNSPECIFIED
     Route: 048
     Dates: start: 20040911
  4. AMLODIPINE BESYLATE [Concomitant]
     Indication: HYPERTENSION
     Dosage: UNSPECIFIED
     Route: 048
     Dates: start: 20061211
  5. PRAVASTATIN SODIUM [Concomitant]
     Indication: HYPERLIPIDAEMIA
     Dosage: UNSPECIFIED
     Route: 048
     Dates: start: 20060807
  6. LIDOCAINE [Concomitant]
     Dosage: UNSPECIFIED DOSE LOCAL INJECTION TWICE MONTHLY
     Dates: start: 20071122, end: 20080131
  7. BENZBROMARONE [Concomitant]
     Indication: HYPERURICAEMIA
     Dosage: UNSPECIFIED
     Route: 048
     Dates: start: 20070625
  8. ASPIRIN [Concomitant]
     Dosage: UNSPECIFIED
     Route: 048
  9. REBAMIPIDE [Concomitant]
     Dosage: UNSPECIFIED
     Route: 048
  10. LIMAPROST [Concomitant]
     Dosage: UNSPECIFIED
     Route: 048
  11. EPERISONE HYDROCHLORIDE [Concomitant]
     Dosage: UNSPECIFIED
     Route: 048
  12. HYALURONIC ACID [Concomitant]
     Dosage: UNSPECIFIED DOSE LOCAL INJECTION TWICE MONTHLY
     Dates: start: 20071122, end: 20080131
  13. FLAVOXATE HCL [Concomitant]
     Dosage: UNSPECIFIED
     Route: 048
  14. LANSOPRAZOLE [Concomitant]
     Indication: REFLUX OESOPHAGITIS
     Dosage: UNSPECIFIED
     Route: 048
     Dates: start: 20050922

REACTIONS (3)
  - CARDIAC FAILURE CHRONIC [None]
  - GENERALISED OEDEMA [None]
  - PLEURAL EFFUSION [None]
